FAERS Safety Report 5622214-5 (Version None)
Quarter: 2008Q1

REPORT INFORMATION
  Report Type: 
  Country: None (occurrence: None)
  Receive Date: 20080206
  Receipt Date: 20080125
  Transmission Date: 20080703
  Serious: Yes (Hospitalization)
  Sender: FDA-Public Use
  Company Number: DSM-2008-00119

PATIENT
  Age: 77 Year
  Sex: Male

DRUGS (4)
  1. OLMESARTAN MEDOXOMIL [Suspect]
     Indication: HYPERTENSION
     Dosage: 20 MG (20 MG, 1 IN 1 D), ORAL
     Route: 048
     Dates: start: 20070727, end: 20070812
  2. ANAGASTRA (PANTOPRAZOLE SODIUM) (PANTOPRAZOLE SODIUM) [Concomitant]
  3. ISCOVER (CLOPIDOGREL SULFATE) (CLOPIDOGREL SULFATE) [Concomitant]
  4. SPIRIVA (TIOTROPIUM BROMIDE) (TIOTROPIUM  BROMIDE) [Concomitant]

REACTIONS (4)
  - ACIDOSIS [None]
  - ELECTROLYTE IMBALANCE [None]
  - METABOLIC DISORDER [None]
  - RENAL FAILURE ACUTE [None]
